FAERS Safety Report 6789072-7 (Version None)
Quarter: 2010Q2

REPORT INFORMATION
  Report Type: 
  Country: None (occurrence: None)
  Receive Date: 20100623
  Receipt Date: 20080908
  Transmission Date: 20101027
  Serious: No
  Sender: FDA-Public Use
  Company Number: US-PFIZER INC-2008027410

PATIENT
  Age: 49 Year
  Sex: Female
  Weight: 170.55 kg

DRUGS (9)
  1. GEODON [Suspect]
     Indication: IRRITABILITY
     Route: 048
     Dates: start: 20050701
  2. GEODON [Suspect]
     Indication: INSOMNIA
  3. BUSPAR [Concomitant]
     Indication: ANXIETY
     Dates: start: 19910301
  4. CELEXA [Concomitant]
     Indication: AFFECTIVE DISORDER
     Dates: start: 19990901
  5. RITALIN [Concomitant]
     Indication: ATTENTION DEFICIT/HYPERACTIVITY DISORDER
     Dates: start: 19970501
  6. CLARITIN [Concomitant]
  7. COZAAR [Concomitant]
  8. SYNTHROID [Concomitant]
  9. SEROQUEL [Concomitant]

REACTIONS (3)
  - DRY MOUTH [None]
  - DYSKINESIA [None]
  - EXTREMITY CONTRACTURE [None]
